FAERS Safety Report 5127828-7 (Version None)
Quarter: 2006Q4

REPORT INFORMATION
  Report Type: 
  Country: None (occurrence: None)
  Receive Date: 20061016
  Receipt Date: 20061002
  Transmission Date: 20070319
  Serious: Yes (Other)
  Sender: FDA-Public Use
  Company Number: US-MERCK-0610USA09351

PATIENT

DRUGS (7)
  1. COZAAR [Suspect]
     Route: 048
  2. IRBESARTAN [Suspect]
     Route: 065
  3. VALSARTAN [Suspect]
     Route: 065
  4. CANDESARTAN [Suspect]
     Route: 065
  5. EPROSARTAN [Suspect]
     Route: 065
  6. TELMISARTAN [Suspect]
     Route: 065
  7. OLMESARTAN MEDOXOMIL [Suspect]
     Route: 065

REACTIONS (1)
  - NEOPLASM MALIGNANT [None]
